FAERS Safety Report 9286481 (Version 3)
Quarter: 2014Q1

REPORT INFORMATION
  Report Type: Spontaneous
  Country: US (occurrence: US)
  Receive Date: 20130513
  Receipt Date: 20140210
  Transmission Date: 20141002
  Serious: Yes (Death, Hospitalization, Other)
  Sender: FDA-Public Use
  Company Number: US-BRISTOL-MYERS SQUIBB COMPANY-18871442

PATIENT
  Age: 59 Year
  Sex: Female

DRUGS (7)
  1. BYETTA [Suspect]
     Indication: TYPE 2 DIABETES MELLITUS
     Dates: start: 20060121, end: 20110315
  2. OXYCONTIN [Concomitant]
  3. MARINOL [Concomitant]
     Indication: NAUSEA
  4. MARINOL [Concomitant]
     Indication: DECREASED APPETITE
  5. ZOFRAN [Concomitant]
     Indication: NAUSEA
  6. ZOFRAN [Concomitant]
     Indication: DECREASED APPETITE
  7. ZOLOFT [Concomitant]
     Indication: DEPRESSION

REACTIONS (5)
  - Pancreatic carcinoma [Fatal]
  - Cholecystitis acute [Unknown]
  - Pancreatitis acute [Unknown]
  - Depression [Unknown]
  - Weight decreased [Unknown]
